FAERS Safety Report 22078761 (Version 1)
Quarter: 2023Q1

REPORT INFORMATION
  Report Type: Report from Study
  Country: US (occurrence: None)
  Receive Date: 20230309
  Receipt Date: 20230309
  Transmission Date: 20230418
  Serious: Yes (Hospitalization)
  Sender: FDA-Public Use
  Company Number: US-Eisai Medical Research-EC-2023-135509

PATIENT
  Age: 79 Year
  Sex: Female

DRUGS (5)
  1. LENVIMA [Suspect]
     Active Substance: LENVATINIB
     Indication: Thyroid cancer
     Route: 048
     Dates: start: 20180123, end: 201803
  2. LENVIMA [Suspect]
     Active Substance: LENVATINIB
     Route: 048
     Dates: start: 20180410, end: 2019
  3. LENVIMA [Suspect]
     Active Substance: LENVATINIB
     Dosage: MISSED DOSES
     Route: 048
     Dates: start: 2019, end: 201912
  4. LENVIMA [Suspect]
     Active Substance: LENVATINIB
     Dosage: MISSED 2 OR 3 DOSES
     Route: 048
     Dates: end: 20200320
  5. LENVIMA [Suspect]
     Active Substance: LENVATINIB
     Route: 048
     Dates: end: 2023

REACTIONS (2)
  - Cerebrovascular accident [Unknown]
  - Amnesia [Unknown]

NARRATIVE: CASE EVENT DATE: 20230101
